FAERS Safety Report 9116720 (Version 1)
Quarter: 2013Q1

REPORT INFORMATION
  Report Type: Spontaneous
  Country: IT (occurrence: IT)
  Receive Date: 20130225
  Receipt Date: 20130225
  Transmission Date: 20140127
  Serious: Yes (Hospitalization)
  Sender: FDA-Public Use
  Company Number: IT-TEVA-387636ISR

PATIENT
  Age: 56 Year
  Sex: Female

DRUGS (1)
  1. PANTOPRAZOL [Suspect]
     Indication: PROPHYLAXIS
     Dosage: 1 DOSAGE FORMS DAILY;
     Route: 048
     Dates: start: 20121006, end: 20121006

REACTIONS (3)
  - Hypersensitivity [Recovered/Resolved]
  - Apnoea [Recovered/Resolved]
  - Asthma [Recovered/Resolved]
